FAERS Safety Report 13301789 (Version 1)
Quarter: 2017Q1

REPORT INFORMATION
  Report Type: Spontaneous
  Country: US (occurrence: US)
  Receive Date: 20170307
  Receipt Date: 20170307
  Transmission Date: 20170428
  Serious: No
  Sender: FDA-Public Use
  Company Number: US-BAYER-2017-044326

PATIENT
  Age: 50 Year
  Sex: Male
  Weight: 174 kg

DRUGS (1)
  1. ZEGERID OTC CAPSULES [Suspect]
     Active Substance: OMEPRAZOLE\SODIUM BICARBONATE
     Indication: GASTROINTESTINAL DISORDER
     Dosage: 1 DF, Q72HR FOR YEARS
     Route: 048

REACTIONS (3)
  - Product quality issue [None]
  - Poor quality drug administered [Recovering/Resolving]
  - Product use issue [Unknown]
